FAERS Safety Report 21991990 (Version 11)
Quarter: 2024Q3

REPORT INFORMATION
  Report Type: Spontaneous
  Country: JP (occurrence: JP)
  Receive Date: 20230214
  Receipt Date: 20240724
  Transmission Date: 20241017
  Serious: Yes (Hospitalization, Other)
  Sender: LUNDBECK
  Company Number: JP-SA-2020SA264220

PATIENT

DRUGS (57)
  1. SABRIL [Suspect]
     Active Substance: VIGABATRIN
     Indication: Infantile spasms
     Dosage: 140 MG, BID
     Route: 048
     Dates: start: 20190204, end: 20190205
  2. SABRIL [Suspect]
     Active Substance: VIGABATRIN
     Dosage: 200 MG, BID
     Route: 048
     Dates: start: 20191226, end: 20200108
  3. SABRIL [Suspect]
     Active Substance: VIGABATRIN
     Dosage: 250 MG, BID
     Route: 048
     Dates: start: 20200109, end: 20200204
  4. SABRIL [Suspect]
     Active Substance: VIGABATRIN
     Dosage: 300 MG, BID
     Route: 048
     Dates: start: 20200205, end: 20200311
  5. SABRIL [Suspect]
     Active Substance: VIGABATRIN
     Dosage: 350 MG, BID
     Route: 048
     Dates: start: 20200312, end: 20200412
  6. SABRIL [Suspect]
     Active Substance: VIGABATRIN
     Dosage: 400 MG, BID
     Route: 048
     Dates: start: 20200413, end: 20200518
  7. SABRIL [Suspect]
     Active Substance: VIGABATRIN
     Dosage: 440 MG, BID
     Route: 048
     Dates: start: 20200519, end: 20200614
  8. SABRIL [Suspect]
     Active Substance: VIGABATRIN
     Dosage: 500 MG, BID
     Route: 048
     Dates: start: 20200615, end: 20200802
  9. SABRIL [Suspect]
     Active Substance: VIGABATRIN
     Dosage: 550 MG, BID
     Route: 048
     Dates: start: 20200803, end: 20201204
  10. SABRIL [Suspect]
     Active Substance: VIGABATRIN
     Dosage: 600 MG, BID
     Route: 048
     Dates: start: 20201205, end: 20210801
  11. SABRIL [Suspect]
     Active Substance: VIGABATRIN
     Dosage: 650 MG, BID
     Route: 048
     Dates: start: 20210802, end: 20211003
  12. SABRIL [Suspect]
     Active Substance: VIGABATRIN
     Dosage: 235 MG, BID
     Route: 048
     Dates: start: 20190206, end: 20190303
  13. SABRIL [Suspect]
     Active Substance: VIGABATRIN
     Dosage: 700 MG, BID
     Route: 048
     Dates: start: 20211004, end: 20211205
  14. SABRIL [Suspect]
     Active Substance: VIGABATRIN
     Dosage: 750 MG, BID
     Route: 048
     Dates: start: 20211206, end: 20220206
  15. SABRIL [Suspect]
     Active Substance: VIGABATRIN
     Dosage: 800 MG, BID
     Route: 048
     Dates: start: 20220207, end: 20220314
  16. SABRIL [Suspect]
     Active Substance: VIGABATRIN
     Dosage: 850 MG, BID
     Route: 048
     Dates: start: 20220315, end: 20220703
  17. SABRIL [Suspect]
     Active Substance: VIGABATRIN
     Dosage: 900 MG, BID
     Route: 048
     Dates: start: 20220704, end: 20220908
  18. SABRIL [Suspect]
     Active Substance: VIGABATRIN
     Dosage: 950 MG, BID (82.6 MG/KG/DAY)
     Route: 048
     Dates: start: 20220909
  19. SABRIL [Suspect]
     Active Substance: VIGABATRIN
     Dosage: 330 MG, BID
     Route: 048
     Dates: start: 20190304, end: 20190410
  20. SABRIL [Suspect]
     Active Substance: VIGABATRIN
     Dosage: 435 MG, BID
     Route: 048
     Dates: start: 20190411, end: 20190702
  21. SABRIL [Suspect]
     Active Substance: VIGABATRIN
     Dosage: 340 MG, BID
     Route: 048
     Dates: start: 20190703, end: 20190807
  22. SABRIL [Suspect]
     Active Substance: VIGABATRIN
     Dosage: 275 MG, BID
     Route: 048
     Dates: start: 20190808, end: 20190908
  23. SABRIL [Suspect]
     Active Substance: VIGABATRIN
     Dosage: 165 MG, BID
     Route: 048
     Dates: start: 20190909, end: 20191006
  24. SABRIL [Suspect]
     Active Substance: VIGABATRIN
     Dosage: 82.5 MG, BID
     Route: 048
     Dates: start: 20191007, end: 20191104
  25. SABRIL [Suspect]
     Active Substance: VIGABATRIN
     Dosage: 150 MG, BID
     Route: 048
     Dates: start: 20191218, end: 20191225
  26. VALPROATE SODIUM [Suspect]
     Active Substance: VALPROATE SODIUM
     Indication: Infantile spasms
     Dosage: DAILY DOSE: 220 MG
     Route: 048
     Dates: end: 20190604
  27. VALPROATE SODIUM [Suspect]
     Active Substance: VALPROATE SODIUM
     Dosage: DAILY DOSE: 260 MG
     Route: 048
     Dates: start: 20190605, end: 20190702
  28. VALPROATE SODIUM [Suspect]
     Active Substance: VALPROATE SODIUM
     Dosage: DAILY DOSE: 300 MG
     Route: 048
     Dates: start: 20190703, end: 20220908
  29. VALPROATE SODIUM [Suspect]
     Active Substance: VALPROATE SODIUM
     Dosage: DAILY DOSE: 340 MG
     Route: 048
     Dates: start: 20220909, end: 20221106
  30. VALPROATE SODIUM [Suspect]
     Active Substance: VALPROATE SODIUM
     Dosage: DAILY DOSE: 400 MG
     Route: 048
     Dates: start: 20221107, end: 20230516
  31. VALPROATE SODIUM [Suspect]
     Active Substance: VALPROATE SODIUM
     Dosage: DAILY DOSE: 480 MG
     Route: 048
     Dates: start: 20230517, end: 2023
  32. PHENOBARBITAL [Suspect]
     Active Substance: PHENOBARBITAL
     Indication: Infantile spasms
     Dosage: DAILY DOSE: 35 MG
     Route: 048
     Dates: end: 20230424
  33. PHENOBARBITAL [Suspect]
     Active Substance: PHENOBARBITAL
     Dosage: DAILY DOSE: 50 MG
     Route: 048
     Dates: start: 20230425
  34. LAMOTRIGINE [Suspect]
     Active Substance: LAMOTRIGINE
     Indication: Infantile spasms
     Dosage: DAILY DOSE: 34 MG
     Route: 048
     Dates: end: 20230420
  35. LAMOTRIGINE [Suspect]
     Active Substance: LAMOTRIGINE
     Dosage: DAILY DOSE: 40 MG
     Route: 048
     Dates: start: 20230421, end: 20230427
  36. LAMOTRIGINE [Suspect]
     Active Substance: LAMOTRIGINE
     Dosage: DAILY DOSE: 45 MG
     Route: 048
     Dates: start: 20230428
  37. VITAMINS [Concomitant]
     Active Substance: VITAMINS
     Indication: Prophylaxis
     Dosage: DAILY DOSE: 0.2 G
     Route: 048
  38. VITAMINS [Concomitant]
     Active Substance: VITAMINS
     Indication: Investigation
  39. SINGULAIR [Concomitant]
     Active Substance: MONTELUKAST SODIUM
     Indication: Product used for unknown indication
     Dosage: DAILY DOSE: 4 MG
     Route: 048
  40. LEVOCARNITINE [Concomitant]
     Active Substance: LEVOCARNITINE
     Indication: Prophylaxis
     Dosage: DAILY DOSE: 1.2 ML
     Route: 048
  41. LEVOCARNITINE [Concomitant]
     Active Substance: LEVOCARNITINE
     Indication: Investigation
  42. DANTRIUM [Concomitant]
     Active Substance: DANTROLENE SODIUM
     Indication: Product used for unknown indication
     Dosage: DAILY DOSE: 9 MG
     Route: 048
  43. POTASSIUM CITRATE\TRISODIUM CITRATE DIHYDRATE [Concomitant]
     Active Substance: POTASSIUM CITRATE\TRISODIUM CITRATE DIHYDRATE
     Indication: Prophylaxis
     Dosage: DAILY DOSE: 1 DF
     Route: 048
  44. POTASSIUM CITRATE\TRISODIUM CITRATE DIHYDRATE [Concomitant]
     Active Substance: POTASSIUM CITRATE\TRISODIUM CITRATE DIHYDRATE
     Indication: Investigation
  45. HERBALS [Concomitant]
     Active Substance: HERBALS
     Indication: Prophylaxis
     Dosage: DAILY DOSE: 2.5 G
     Route: 048
  46. HERBALS [Concomitant]
     Active Substance: HERBALS
     Indication: Investigation
  47. MUCOSAL [ACETYLCYSTEINE] [Concomitant]
     Indication: Product used for unknown indication
     Dosage: DAILY DOSE: 4.5 MG
     Route: 048
  48. CARBOCYSTEINE [Concomitant]
     Active Substance: CARBOCYSTEINE
     Indication: Product used for unknown indication
     Dosage: DAILY DOSE: 250 MG
     Route: 048
  49. TULOBUTEROL [Concomitant]
     Active Substance: TULOBUTEROL
     Indication: Product used for unknown indication
     Dosage: DAILY DOSE: 0.5 MG
     Route: 061
  50. PULMICORT TURBUHALER [Concomitant]
     Active Substance: BUDESONIDE
     Indication: Product used for unknown indication
     Dosage: DAILY DOSE: 1 INHALATION
     Route: 055
  51. MELATOBEL [Concomitant]
     Indication: Product used for unknown indication
     Dosage: DAILY DOSE: 0.125 G
     Route: 048
     Dates: start: 20201204
  52. EPINASTINE [Concomitant]
     Active Substance: EPINASTINE
     Indication: Product used for unknown indication
     Dosage: DAILY DOSE: 5 MG
     Route: 048
     Dates: start: 20220411
  53. LEVETIRACETAM [Concomitant]
     Active Substance: LEVETIRACETAM
     Indication: Infantile spasms
     Dosage: DAILY DOSE: 250 MG
     Route: 048
     Dates: start: 20230503, end: 20230508
  54. LEVETIRACETAM [Concomitant]
     Active Substance: LEVETIRACETAM
     Dosage: DAILY DOSE: 375 MG
     Route: 048
     Dates: start: 20230509, end: 20230611
  55. LEVETIRACETAM [Concomitant]
     Active Substance: LEVETIRACETAM
     Dosage: DAILY DOSE: 500 MG
     Route: 048
     Dates: start: 20230612, end: 20230708
  56. LEVETIRACETAM [Concomitant]
     Active Substance: LEVETIRACETAM
     Dosage: DAILY DOSE: 625 MG
     Route: 048
     Dates: start: 20230709, end: 20230723
  57. LEVETIRACETAM [Concomitant]
     Active Substance: LEVETIRACETAM
     Dosage: DAILY DOSE: 1000 MG
     Route: 048
     Dates: start: 20230724

REACTIONS (8)
  - COVID-19 [Recovered/Resolved]
  - Pancreatitis [Recovered/Resolved]
  - Pneumonia [Recovered/Resolved]
  - Status epilepticus [Recovered/Resolved]
  - Status epilepticus [Recovered/Resolved]
  - Physical deconditioning [Recovered/Resolved]
  - Hepatic function abnormal [Unknown]
  - Gastritis [Recovered/Resolved]

NARRATIVE: CASE EVENT DATE: 20230708
